FAERS Safety Report 12137483 (Version 4)
Quarter: 2016Q2

REPORT INFORMATION
  Report Type: Report from Study
  Country: US (occurrence: US)
  Receive Date: 20160302
  Receipt Date: 20160503
  Transmission Date: 20160815
  Serious: Yes (Other)
  Sender: FDA-Public Use
  Company Number: US-GILEAD-2015-0187407

PATIENT
  Age: 70 Year
  Sex: Female

DRUGS (3)
  1. TYVASO [Concomitant]
     Active Substance: TREPROSTINIL
     Dosage: UNK
     Dates: end: 201603
  2. AMLODIPINE [Concomitant]
     Active Substance: AMLODIPINE BESYLATE
  3. AMBRISENTAN [Suspect]
     Active Substance: AMBRISENTAN
     Indication: PRODUCT USED FOR UNKNOWN INDICATION
     Dosage: 10 MG, QD
     Route: 065
     Dates: start: 20120411

REACTIONS (12)
  - Dry mouth [Unknown]
  - Throat irritation [Unknown]
  - Chest discomfort [Unknown]
  - Atypical pneumonia [Unknown]
  - Pain in extremity [Not Recovered/Not Resolved]
  - Dry throat [Unknown]
  - Feeling cold [Not Recovered/Not Resolved]
  - Myalgia [Not Recovered/Not Resolved]
  - Cough [Unknown]
  - Arthropathy [Unknown]
  - Oedema peripheral [Unknown]
  - Drug dose omission [Unknown]
